FAERS Safety Report 10169687 (Version 1)
Quarter: 2014Q2

REPORT INFORMATION
  Report Type: Spontaneous
  Country: GB (occurrence: GB)
  Receive Date: 20140513
  Receipt Date: 20140513
  Transmission Date: 20141212
  Serious: Yes (Other)
  Sender: FDA-Public Use
  Company Number: GB-PFIZER INC-2014129100

PATIENT
  Age: 69 Year
  Sex: Male
  Weight: 88 kg

DRUGS (3)
  1. AMLODIPINE BESILATE [Suspect]
     Dosage: UNK
     Dates: start: 20131224
  2. CLARITHROMYCIN [Concomitant]
     Dosage: UNK
     Dates: start: 20140331, end: 20140407
  3. RAMIPRIL [Concomitant]
     Dosage: UNK
     Dates: start: 20131224, end: 20140218

REACTIONS (1)
  - Vitiligo [Unknown]
